FAERS Safety Report 5520517-6 (Version None)
Quarter: 2007Q4

REPORT INFORMATION
  Report Type: 
  Country: None (occurrence: None)
  Receive Date: 20071115
  Receipt Date: 20071109
  Transmission Date: 20080405
  Serious: Yes (Other)
  Sender: FDA-Public Use
  Company Number: 2007334432

PATIENT
  Age: 66 Year
  Sex: Female
  Weight: 51.2565 kg

DRUGS (1)
  1. NATURAL CITRUS LISTERINE (MENTHOL, METHYL SALICYLATE, EUCALYPTOL, THYM [Suspect]
     Indication: DENTAL DISORDER PROPHYLAXIS
     Dosage: MOUTHFUL 10-15 TIMES A DAY,ORAL
     Route: 048

REACTIONS (1)
  - FUNGAL INFECTION [None]
